FAERS Safety Report 7890831-8 (Version None)
Quarter: 2011Q4

REPORT INFORMATION
  Report Type: 
  Country: None (occurrence: None)
  Receive Date: 20111103
  Receipt Date: 20110726
  Transmission Date: 20120403
  Serious: No
  Sender: FDA-Public Use
  Company Number: US-AMGEN-USASP2011037861

PATIENT
  Sex: Female
  Weight: 65.76 kg

DRUGS (11)
  1. CARDIZEM CD [Concomitant]
     Dosage: 180 MG, UNK
  2. AMITRIPTYLINE HCL [Concomitant]
     Dosage: 10 MG, UNK
  3. VITAMIN C                          /00008001/ [Concomitant]
     Dosage: 500 MG, UNK
  4. ASPIRIN [Concomitant]
     Dosage: 81 MG, UNK
  5. MULTI-VITAMINS [Concomitant]
     Dosage: UNK
  6. ZOCOR [Concomitant]
     Dosage: 10 MG, UNK
  7. ALLEGRA-D                          /01367401/ [Concomitant]
  8. FISH OIL [Concomitant]
     Dosage: UNK
  9. AMBIEN [Concomitant]
     Dosage: 5 MG, UNK
  10. LOPRESSOR [Concomitant]
     Dosage: 100 MG, UNK
  11. ENBREL [Suspect]
     Indication: PRODUCT USED FOR UNKNOWN INDICATION
     Dosage: 50 MG, QWK

REACTIONS (2)
  - ABDOMINAL PAIN [None]
  - URINARY TRACT INFECTION [None]
